FAERS Safety Report 20471080 (Version 2)
Quarter: 2022Q1

REPORT INFORMATION
  Report Type: Report from Study
  Country: US (occurrence: US)
  Receive Date: 20220214
  Receipt Date: 20220324
  Transmission Date: 20220423
  Serious: No
  Sender: FDA-Public Use
  Company Number: US-LUNDBECK-DKLU3044204

PATIENT
  Age: 55 Year
  Sex: Female

DRUGS (1)
  1. VYEPTI [Suspect]
     Active Substance: EPTINEZUMAB-JJMR
     Indication: Migraine
     Route: 041

REACTIONS (2)
  - Migraine [Recovered/Resolved]
  - Therapeutic response shortened [Unknown]
